FAERS Safety Report 8190007-3 (Version None)
Quarter: 2012Q1

REPORT INFORMATION
  Report Type: 
  Country: None (occurrence: None)
  Receive Date: 20120307
  Receipt Date: 20120228
  Transmission Date: 20120608
  Serious: Yes (Death)
  Sender: FDA-Public Use
  Company Number: US-JNJFOC-20120302125

PATIENT

DRUGS (2)
  1. PLACEBO [Suspect]
     Indication: SARCOMA
     Dosage: FOR UPTO 6 CYCLES
     Route: 065
  2. DOXORUBICIN HCL [Suspect]
     Indication: SARCOMA
     Dosage: FOR UPTO 6 CYCLES
     Route: 042

REACTIONS (1)
  - SEPTIC SHOCK [None]
